FAERS Safety Report 22034613 (Version 5)
Quarter: 2023Q2

REPORT INFORMATION
  Report Type: Report from Study
  Country: CN (occurrence: CN)
  Receive Date: 20230224
  Receipt Date: 20230426
  Transmission Date: 20230721
  Serious: Yes (Hospitalization)
  Sender: FDA-Public Use
  Company Number: CN-002147023-NVSC2023CN039437

PATIENT
  Age: 59 Year
  Sex: Female
  Weight: 75 kg

DRUGS (13)
  1. INCLISIRAN [Suspect]
     Active Substance: INCLISIRAN
     Indication: Arteriosclerosis
     Dosage: 1 SYRINGE
     Route: 058
     Dates: start: 20220819
  2. PLACEBO [Suspect]
     Active Substance: UNSPECIFIED INGREDIENT
     Indication: Arteriosclerosis
     Dosage: UNK
     Route: 058
     Dates: start: 20210601
  3. ATORVASTATIN [Concomitant]
     Active Substance: ATORVASTATIN
     Indication: Hyperlipidaemia
     Dosage: UNK
     Route: 065
     Dates: start: 20210425, end: 20230220
  4. ATORVASTATIN [Concomitant]
     Active Substance: ATORVASTATIN
     Indication: Myocardial infarction
  5. ASPIRIN [Concomitant]
     Active Substance: ASPIRIN
     Indication: Arteriosclerosis
     Dosage: UNK
     Route: 065
     Dates: start: 20161011
  6. MONOPRIL [Concomitant]
     Active Substance: FOSINOPRIL SODIUM
     Indication: Arteriosclerosis
     Dosage: UNK
     Route: 065
     Dates: start: 201701, end: 20230225
  7. MONOPRIL [Concomitant]
     Active Substance: FOSINOPRIL SODIUM
     Indication: Hypertension
  8. METOPROLOL [Concomitant]
     Active Substance: METOPROLOL
     Indication: Arteriosclerosis
     Dosage: UNK
     Route: 065
     Dates: start: 201701
  9. METOPROLOL [Concomitant]
     Active Substance: METOPROLOL
     Indication: Hypertension
  10. METFORMIN HYDROCHLORIDE [Concomitant]
     Active Substance: METFORMIN HYDROCHLORIDE
     Indication: Type 2 diabetes mellitus
     Dosage: UNK
     Route: 065
     Dates: start: 20210805
  11. LIRAGLUTIDE [Concomitant]
     Active Substance: LIRAGLUTIDE
     Indication: Type 2 diabetes mellitus
     Dosage: UNK
     Route: 065
     Dates: start: 20211119
  12. INSULIN ASPART [Concomitant]
     Active Substance: INSULIN ASPART
     Indication: Type 2 diabetes mellitus
     Dosage: UNK
     Route: 065
     Dates: start: 20210827, end: 20230225
  13. INSULIN ASPART [Concomitant]
     Active Substance: INSULIN ASPART
     Dosage: UNK
     Route: 065
     Dates: start: 20210827

REACTIONS (1)
  - Abdominal distension [Recovered/Resolved]

NARRATIVE: CASE EVENT DATE: 20230220
